FAERS Safety Report 4789511-7 (Version None)
Quarter: 2005Q4

REPORT INFORMATION
  Report Type: 
  Country: None (occurrence: None)
  Receive Date: 20051005
  Receipt Date: 20051005
  Transmission Date: 20060501
  Serious: Yes (Disabling)
  Sender: FDA-Public Use
  Company Number: None

PATIENT
  Sex: Male
  Weight: 109 kg

DRUGS (1)
  1. DIATRIZOATE MEGLUMINE [Suspect]
     Indication: SCAN WITH CONTRAST
     Dosage: 30ML PO
     Route: 048

REACTIONS (2)
  - BLOOD CREATININE INCREASED [None]
  - HAEMODIALYSIS [None]
